FAERS Safety Report 7017813-2 (Version None)
Quarter: 2010Q3

REPORT INFORMATION
  Report Type: 
  Country: None (occurrence: None)
  Receive Date: 20100928
  Receipt Date: 20100922
  Transmission Date: 20110219
  Serious: Yes (Other)
  Sender: FDA-Public Use
  Company Number: CA-BAYER-201034543NA

PATIENT
  Age: 38 Year
  Sex: Male

DRUGS (1)
  1. MIRENA [Suspect]
     Indication: PRODUCT USED FOR UNKNOWN INDICATION
     Dosage: FREQUENCY: CONTINUOUS
     Route: 015

REACTIONS (5)
  - MALAISE [None]
  - PENILE INFECTION [None]
  - PENILE PAIN [None]
  - PYREXIA [None]
  - SCRATCH [None]
